FAERS Safety Report 9334226 (Version 1)
Quarter: 2013Q2

REPORT INFORMATION
  Report Type: Spontaneous
  Country: US (occurrence: US)
  Receive Date: 20130606
  Receipt Date: 20130606
  Transmission Date: 20140414
  Serious: No
  Sender: FDA-Public Use
  Company Number: US-AMGEN-USASP2013001411

PATIENT
  Age: 63 Year
  Sex: Female
  Weight: 73.02 kg

DRUGS (2)
  1. PROLIA [Suspect]
     Indication: OSTEOPOROSIS POSTMENOPAUSAL
     Dosage: 60 MG, Q6MO
     Dates: start: 20120622
  2. PROLIA [Suspect]
     Dosage: 60 MG, Q6MO
     Dates: start: 20121219

REACTIONS (1)
  - Injection site pain [Not Recovered/Not Resolved]
